FAERS Safety Report 8001761-5 (Version None)
Quarter: 2011Q4

REPORT INFORMATION
  Report Type: 
  Country: None (occurrence: None)
  Receive Date: 20111222
  Receipt Date: 20111209
  Transmission Date: 20120403
  Serious: Yes (Other)
  Sender: FDA-Public Use
  Company Number: KP-AMGEN-PRKSP2011066368

PATIENT
  Age: 35 Year
  Sex: Male

DRUGS (1)
  1. NESPO [Suspect]
     Indication: NEPHROGENIC ANAEMIA
     Dosage: 50 IU, QWK
     Route: 058
     Dates: start: 20091201, end: 20100201

REACTIONS (4)
  - ANTIBODY TEST POSITIVE [None]
  - ERYTHROPENIA [None]
  - THROMBOCYTOPENIA [None]
  - NEUTRALISING ANTIBODIES POSITIVE [None]
